FAERS Safety Report 15660317 (Version 1)
Quarter: 2018Q4

REPORT INFORMATION
  Report Type: Report from Study
  Country: US (occurrence: US)
  Receive Date: 20181127
  Receipt Date: 20181127
  Transmission Date: 20190205
  Serious: Yes (Other)
  Sender: FDA-Public Use
  Company Number: US-TEVA-2018-US-980549

PATIENT
  Age: 79 Year
  Sex: Female

DRUGS (3)
  1. LENALIDOMIDE [Suspect]
     Active Substance: LENALIDOMIDE
     Indication: ACUTE MYELOID LEUKAEMIA
     Dosage: 10 MILLIGRAM DAILY; FOR 21 DAYS; INDUCTION THERAPY
     Route: 048
  2. CYTARABINE. [Suspect]
     Active Substance: CYTARABINE
     Indication: ACUTE MYELOID LEUKAEMIA
     Dosage: 2 G/M2 ONCE DAILY FROM DAY 1-5 FOR THREE CYCLES
     Route: 041
  3. LENALIDOMIDE [Suspect]
     Active Substance: LENALIDOMIDE
     Indication: ACUTE MYELOID LEUKAEMIA
     Dosage: 10 MILLIGRAM DAILY; FOR 21 DAYS OF 28-DAY CYCLE; MAINTENANCE THERAPY.
     Route: 065

REACTIONS (5)
  - Infection [Recovered/Resolved]
  - Infusion site rash [Recovered/Resolved]
  - Cytopenia [Recovered/Resolved]
  - Rash [Recovered/Resolved]
  - Febrile neutropenia [Recovered/Resolved]
